FAERS Safety Report 12222094 (Version 1)
Quarter: 2016Q1

REPORT INFORMATION
  Report Type: Spontaneous
  Country: JP (occurrence: JP)
  Receive Date: 20160330
  Receipt Date: 20160330
  Transmission Date: 20160526
  Serious: Yes (Death, Other)
  Sender: FDA-Public Use
  Company Number: JP-TEVA-647377ISR

PATIENT
  Age: 22 Year

DRUGS (2)
  1. IRINOTECAN [Suspect]
     Active Substance: IRINOTECAN
     Indication: GERM CELL CANCER METASTATIC
     Dosage: 100 MG/M2 ON DAYS 1 AND 15 IN A 28-DAY CYCLE, EVERY 4 WEEKS, TOTAL 3 COURSES
     Route: 065
  2. NEDAPLATIN [Suspect]
     Active Substance: NEDAPLATIN
     Indication: GERM CELL CANCER METASTATIC
     Dosage: 100 MG/M2 ON DAY 1 IN A 28-DAY CYCLE, EVERY 4 WEEKS, TOTAL 3 COURSES
     Route: 065

REACTIONS (2)
  - Respiratory failure [Fatal]
  - Interstitial lung disease [Unknown]
